FAERS Safety Report 8587303-4 (Version None)
Quarter: 2012Q3

REPORT INFORMATION
  Report Type: 
  Country: None (occurrence: None)
  Receive Date: 20120810
  Receipt Date: 20120201
  Transmission Date: 20120928
  Serious: No
  Sender: FDA-Public Use
  Company Number: US-ASTRAZENECA-2012SE07148

PATIENT
  Age: 65 Year
  Sex: Female

DRUGS (3)
  1. ARIMIDEX [Suspect]
     Route: 048
  2. STEROIDS [Concomitant]
  3. RHINOCORT [Suspect]
     Route: 045

REACTIONS (4)
  - MALAISE [None]
  - BRONCHITIS [None]
  - DYSPNOEA [None]
  - BRONCHIAL HYPERREACTIVITY [None]
